FAERS Safety Report 26200751 (Version 1)
Quarter: 2025Q4

REPORT INFORMATION
  Report Type: Spontaneous
  Country: US (occurrence: US)
  Receive Date: 20251226
  Receipt Date: 20251226
  Transmission Date: 20260117
  Serious: Yes (Life-Threatening, Hospitalization)
  Sender: AMGEN
  Company Number: US-AMGEN-USASP2025251071

PATIENT
  Age: 26 Year
  Sex: Female

DRUGS (8)
  1. RITUXIMAB [Suspect]
     Active Substance: RITUXIMAB
     Indication: Stiff person syndrome
     Dosage: UNK (EVERY 5 MONTHS)
     Route: 065
  2. PREDNISONE [Suspect]
     Active Substance: PREDNISONE
     Indication: Adrenal insufficiency
     Dosage: 5 MILLIGRAM
     Route: 065
  3. PREDNISONE [Suspect]
     Active Substance: PREDNISONE
     Indication: Addison^s disease
     Dosage: 5 MILLIGRAM
     Route: 065
  4. INSULIN NOS [Concomitant]
     Active Substance: INSULIN NOS
     Dosage: UNK
  5. INSULIN NOS [Concomitant]
     Active Substance: INSULIN NOS
     Dosage: UNK (RESUMED ON HALF THE NORMAL DOSE)
  6. DIAZEPAM [Concomitant]
     Active Substance: DIAZEPAM
     Indication: Stiff person syndrome
     Dosage: 300 MILLIGRAM, TID
  7. QUETIAPINE [Concomitant]
     Active Substance: QUETIAPINE
     Indication: Stiff person syndrome
     Dosage: 100 MILLIGRAM (AT NIGHT)
  8. TIZANIDINE [Concomitant]
     Active Substance: TIZANIDINE
     Indication: Stiff person syndrome
     Dosage: 6 MILLIGRAM

REACTIONS (11)
  - Stiff person syndrome [Unknown]
  - Hypoxia [Unknown]
  - SARS-CoV-2 test positive [Unknown]
  - Oral candidiasis [Unknown]
  - Candida sepsis [Unknown]
  - Hypoglycaemia [Unknown]
  - Blood potassium abnormal [Unknown]
  - Blood magnesium abnormal [Unknown]
  - Blood phosphorus abnormal [Unknown]
  - Malnutrition [Unknown]
  - Off label use [Unknown]
